FAERS Safety Report 18645362 (Version 6)
Quarter: 2021Q1

REPORT INFORMATION
  Report Type: Spontaneous
  Country: US (occurrence: US)
  Receive Date: 20201221
  Receipt Date: 20210203
  Transmission Date: 20210419
  Serious: No
  Sender: FDA-Public Use
  Company Number: US-PFIZER INC-2020500140

PATIENT
  Age: 77 Year
  Sex: Female
  Weight: 71.67 kg

DRUGS (2)
  1. LYRICA [Suspect]
     Active Substance: PREGABALIN
     Indication: POST HERPETIC NEURALGIA
  2. LYRICA [Suspect]
     Active Substance: PREGABALIN
     Indication: PAIN
     Dosage: 75 MG, 2X/DAY (ONE CAPSULE IN THE MORNING AND ONE AT NIGHT)
     Route: 048
     Dates: end: 202012

REACTIONS (5)
  - Abdominal discomfort [Recovered/Resolved]
  - Bradykinesia [Unknown]
  - Herpes zoster [Unknown]
  - Drug ineffective [Unknown]
  - Headache [Recovered/Resolved]

NARRATIVE: CASE EVENT DATE: 202012
